FAERS Safety Report 23428151 (Version 4)
Quarter: 2025Q1

REPORT INFORMATION
  Report Type: Report from Study
  Country: US (occurrence: US)
  Receive Date: 20240122
  Receipt Date: 20250105
  Transmission Date: 20250409
  Serious: Yes (Other)
  Sender: TAKEDA
  Company Number: US-TAKEDA-2024TUS004908

PATIENT
  Sex: Female

DRUGS (1)
  1. HUMAN IMMUNOGLOBULIN G [Suspect]
     Active Substance: HUMAN IMMUNOGLOBULIN G
     Indication: Chronic inflammatory demyelinating polyradiculoneuropathy
     Dosage: UNK UNK, Q3WEEKS

REACTIONS (11)
  - Near death experience [Unknown]
  - Circulatory collapse [Unknown]
  - Limb discomfort [Unknown]
  - Bronchitis [Unknown]
  - Gait inability [Unknown]
  - Skin discolouration [Unknown]
  - Disease recurrence [Unknown]
  - General physical health deterioration [Unknown]
  - Impaired work ability [Unknown]
  - Insurance issue [Unknown]
  - Muscular weakness [Unknown]
